FAERS Safety Report 7606430-9 (Version None)
Quarter: 2011Q3

REPORT INFORMATION
  Report Type: 
  Country: None (occurrence: None)
  Receive Date: 20110712
  Receipt Date: 20110712
  Transmission Date: 20111222
  Serious: Yes (Hospitalization)
  Sender: FDA-Public Use
  Company Number: None

PATIENT
  Age: 31 Year
  Sex: Male
  Weight: 71.8 kg

DRUGS (1)
  1. CLOZARIL [Suspect]
     Indication: SCHIZOAFFECTIVE DISORDER
     Dosage: 100 MG BID PO
     Route: 048
     Dates: start: 20110201, end: 20110322

REACTIONS (4)
  - AGGRESSION [None]
  - AGITATION [None]
  - LEUKOPENIA [None]
  - NEUTROPHIL COUNT DECREASED [None]
